FAERS Safety Report 5124206-1 (Version None)
Quarter: 2006Q4

REPORT INFORMATION
  Report Type: 
  Country: None (occurrence: None)
  Receive Date: 20061010
  Receipt Date: 20060922
  Transmission Date: 20070319
  Serious: Yes (Hospitalization, Other)
  Sender: FDA-Public Use
  Company Number: 2006UW18654

PATIENT
  Age: 26307 Day
  Sex: Female

DRUGS (2)
  1. ROSUVASTATIN [Suspect]
     Indication: HYPERCHOLESTEROLAEMIA
     Route: 048
     Dates: start: 20060917, end: 20060918
  2. ROSUVASTATIN [Suspect]
     Route: 048
     Dates: start: 20060918, end: 20060919

REACTIONS (1)
  - MYOCLONUS [None]
